FAERS Safety Report 4383710-4 (Version None)
Quarter: 2004Q2

REPORT INFORMATION
  Report Type: 
  Country: None (occurrence: None)
  Receive Date: 20040618
  Receipt Date: 20040610
  Transmission Date: 20050107
  Serious: Yes (Hospitalization, Other)
  Sender: FDA-Public Use
  Company Number: FRWYE816910JUN04

PATIENT
  Age: 73 Year
  Sex: Female

DRUGS (3)
  1. EFFEXOR XR [Suspect]
     Dosage: 37.5 MG 1X PER 1 DAY
     Route: 048
     Dates: start: 20040405, end: 20040413
  2. LORAZEPAM [Suspect]
     Dosage: 1 MG 1X PER 1 DAY
     Route: 048
     Dates: start: 20040411, end: 20040413
  3. ALDACTAZIDE [Concomitant]

REACTIONS (4)
  - AGITATION [None]
  - BLOOD PRESSURE SYSTOLIC INCREASED [None]
  - CONFUSIONAL STATE [None]
  - PERSECUTORY DELUSION [None]
